FAERS Safety Report 4694584-6 (Version None)
Quarter: 2005Q2

REPORT INFORMATION
  Report Type: 
  Country: None (occurrence: None)
  Receive Date: 20050620
  Receipt Date: 20050131
  Transmission Date: 20051028
  Serious: Yes (Disabling, Other)
  Sender: FDA-Public Use
  Company Number: DE-SANOFI-SYNTHELABO-A04200500094

PATIENT
  Sex: Female
  Weight: 54 kg

DRUGS (4)
  1. QUENSYL [Suspect]
     Indication: RHEUMATOID ARTHRITIS
     Route: 048
     Dates: start: 20031209
  2. GLAUCOMA MEDICATION [Concomitant]
     Dosage: UNK
     Route: 065
  3. PREDNISOLONE [Concomitant]
     Dosage: UNK
     Route: 048
     Dates: start: 20021101
  4. ACTONEL [Concomitant]
     Route: 048
     Dates: start: 20021201

REACTIONS (4)
  - CONDITION AGGRAVATED [None]
  - LOW TENSION GLAUCOMA [None]
  - OPTIC NERVE DISORDER [None]
  - VISUAL FIELD DEFECT [None]
